FAERS Safety Report 7815790-5 (Version None)
Quarter: 2011Q4

REPORT INFORMATION
  Report Type: 
  Country: None (occurrence: None)
  Receive Date: 20111014
  Receipt Date: 20111005
  Transmission Date: 20120403
  Serious: Yes (Hospitalization)
  Sender: FDA-Public Use
  Company Number: FR-ROCHE-1002529

PATIENT
  Age: 67 Year
  Sex: Female

DRUGS (2)
  1. ROCEPHIN [Suspect]
     Indication: CHOLECYSTITIS
     Route: 042
     Dates: start: 20110904, end: 20110912
  2. ROCEPHIN [Suspect]
     Indication: PYELONEPHRITIS

REACTIONS (3)
  - INFLAMMATION [None]
  - PYREXIA [None]
  - MYOSITIS [None]
